FAERS Safety Report 4578798-1 (Version None)
Quarter: 2005Q1

REPORT INFORMATION
  Report Type: 
  Country: None (occurrence: None)
  Receive Date: 20050207
  Receipt Date: 20050207
  Transmission Date: 20050727
  Serious: Yes (Other)
  Sender: FDA-Public Use
  Company Number: None

PATIENT
  Age: 66 Year
  Sex: Female
  Weight: 66.2252 kg

DRUGS (4)
  1. PLAVIX [Suspect]
     Indication: LACUNAR INFARCTION
  2. LIPITOR [Concomitant]
  3. AVAPRO [Concomitant]
  4. ASPIRIN [Concomitant]

REACTIONS (2)
  - AMNESIA [None]
  - SURGERY [None]
